FAERS Safety Report 17680621 (Version 3)
Quarter: 2020Q2

REPORT INFORMATION
  Report Type: Report from Study
  Country: IN (occurrence: IN)
  Receive Date: 20200417
  Receipt Date: 20200504
  Transmission Date: 20200714
  Serious: Yes (Hospitalization, Other)
  Sender: FDA-Public Use
  Company Number: NVSC2020IN004413

PATIENT
  Age: 44 Year
  Sex: Male
  Weight: 92 kg

DRUGS (4)
  1. OLMECIP-AM [Concomitant]
     Indication: HYPERTENSION
     Dosage: 1 DF, QD
     Route: 048
  2. GALVUS MET [Suspect]
     Active Substance: METFORMIN HYDROCHLORIDE\VILDAGLIPTIN
     Dosage: UNK UNK, BID (50/500)
     Route: 048
     Dates: start: 20200217
  3. GLIMESTAR [Concomitant]
     Indication: DIABETES MELLITUS
     Dosage: UNK UNK, QD
     Route: 048
  4. GALVUS MET [Suspect]
     Active Substance: METFORMIN HYDROCHLORIDE\VILDAGLIPTIN
     Indication: DIABETES MELLITUS
     Dosage: UNK UNK, BID (50/1000) (START DATE: SINCE 3 YEARS),1-0-1
     Route: 048

REACTIONS (18)
  - Blood pressure fluctuation [Not Recovered/Not Resolved]
  - Blood creatinine increased [Unknown]
  - Vomiting [Unknown]
  - Pruritus [Recovering/Resolving]
  - Dysuria [Unknown]
  - Infection [Unknown]
  - Decreased appetite [Unknown]
  - Fatigue [Unknown]
  - Insomnia [Unknown]
  - Eye infection [Unknown]
  - Nephrolithiasis [Unknown]
  - Back pain [Not Recovered/Not Resolved]
  - Hyperglycaemia [Unknown]
  - Kidney infection [Not Recovered/Not Resolved]
  - Hepatic steatosis [Not Recovered/Not Resolved]
  - Weight increased [Not Recovered/Not Resolved]
  - Blood cholesterol increased [Unknown]
  - Abdominal pain upper [Unknown]

NARRATIVE: CASE EVENT DATE: 20200217
